FAERS Safety Report 4684671-0 (Version None)
Quarter: 2005Q2

REPORT INFORMATION
  Report Type: 
  Country: None (occurrence: None)
  Receive Date: 20050531
  Receipt Date: 20041214
  Transmission Date: 20051028
  Serious: Yes (Hospitalization)
  Sender: FDA-Public Use
  Company Number: US_0501109915

PATIENT
  Age: 27 Year
  Sex: Female
  Weight: 94 kg

DRUGS (1)
  1. ZYPREXA [Suspect]
     Indication: BIPOLAR DISORDER
     Dosage: 40 MG
     Dates: start: 20030120, end: 20040110

REACTIONS (18)
  - ANGER [None]
  - DECREASED APPETITE [None]
  - DEPRESSION [None]
  - DIABETES MELLITUS [None]
  - DRUG INEFFECTIVE [None]
  - FATIGUE [None]
  - HALLUCINATION, AUDITORY [None]
  - HALLUCINATION, VISUAL [None]
  - IRRITABILITY [None]
  - MANIA [None]
  - MOOD SWINGS [None]
  - PANIC ATTACK [None]
  - PARANOIA [None]
  - PRESCRIBED OVERDOSE [None]
  - PSYCHOTIC DISORDER [None]
  - SELF MUTILATION [None]
  - SUICIDAL IDEATION [None]
  - THINKING ABNORMAL [None]
